FAERS Safety Report 25483947 (Version 1)
Quarter: 2025Q2

REPORT INFORMATION
  Report Type: Spontaneous
  Country: CN (occurrence: CN)
  Receive Date: 20250626
  Receipt Date: 20250626
  Transmission Date: 20250717
  Serious: Yes (Other)
  Sender: PFIZER
  Company Number: CN-PFIZER INC-PV202500075820

PATIENT
  Age: 40 Year
  Sex: Female
  Weight: 86 kg

DRUGS (3)
  1. HEMABATE [Suspect]
     Active Substance: CARBOPROST TROMETHAMINE
     Indication: Premature separation of placenta
     Dosage: 250 UG, 1X/DAY
     Route: 030
     Dates: start: 20250618, end: 20250618
  2. SUCCINYLCHOLINE CHLORIDE [Concomitant]
     Active Substance: SUCCINYLCHOLINE CHLORIDE
     Indication: Surgery
     Dosage: 100 MG, 1X/DAY
     Route: 042
     Dates: start: 20250618, end: 20250618
  3. XIAN LIN [Concomitant]
     Indication: Surgery
     Dosage: 4 MG, 1X/DAY
     Route: 042
     Dates: start: 20250618, end: 20250618

REACTIONS (2)
  - Oxygen saturation decreased [Recovered/Resolved]
  - Off label use [Unknown]

NARRATIVE: CASE EVENT DATE: 20250618
